FAERS Safety Report 5021223-7 (Version None)
Quarter: 2006Q2

REPORT INFORMATION
  Report Type: 
  Country: None (occurrence: None)
  Receive Date: 20060608
  Receipt Date: 20051227
  Transmission Date: 20061013
  Serious: Yes (Disabling)
  Sender: FDA-Public Use
  Company Number: US-ROCHE-430213

PATIENT
  Age: 16 Year
  Sex: Male
  Weight: 88.9 kg

DRUGS (2)
  1. ACCUTANE [Suspect]
     Indication: ACNE
     Route: 048
     Dates: start: 19870615, end: 19880615
  2. ANTIBIOTICS NOS [Concomitant]

REACTIONS (38)
  - ANOREXIA [None]
  - ARTERIAL RESTENOSIS [None]
  - ARTHRITIS [None]
  - ARTHROPATHY [None]
  - BACK PAIN [None]
  - BLOOD ALBUMIN DECREASED [None]
  - COAGULOPATHY [None]
  - COLITIS [None]
  - COLITIS ULCERATIVE [None]
  - CONTUSION [None]
  - CORONARY ARTERY RESTENOSIS [None]
  - CROHN'S DISEASE [None]
  - DEPRESSION [None]
  - DRY EYE [None]
  - DYSPEPSIA [None]
  - FACIAL BONES FRACTURE [None]
  - FAMILY STRESS [None]
  - FATIGUE [None]
  - FRACTURE [None]
  - HAEMORRHAGE [None]
  - HEAD INJURY [None]
  - HYPERTENSION [None]
  - IMMUNE SYSTEM DISORDER [None]
  - INFLAMMATORY BOWEL DISEASE [None]
  - IRON DEFICIENCY ANAEMIA [None]
  - MUSCLE SPASMS [None]
  - MYOSITIS [None]
  - NASAL SEPTUM DEVIATION [None]
  - NECK INJURY [None]
  - OBSTRUCTIVE AIRWAYS DISORDER [None]
  - PAIN [None]
  - PHARYNGITIS STREPTOCOCCAL [None]
  - PYREXIA [None]
  - REFLUX OESOPHAGITIS [None]
  - ROAD TRAFFIC ACCIDENT [None]
  - SOMNOLENCE [None]
  - STRESS [None]
  - UPPER RESPIRATORY TRACT INFECTION [None]
